FAERS Safety Report 23684447 (Version 1)
Quarter: 2024Q1

REPORT INFORMATION
  Report Type: Spontaneous
  Country: JP (occurrence: JP)
  Receive Date: 20240328
  Receipt Date: 20240328
  Transmission Date: 20240410
  Serious: Yes (Hospitalization)
  Sender: FDA-Public Use
  Company Number: JP-Eisai-EC-2024-162043

PATIENT
  Age: 69 Year
  Sex: Male

DRUGS (6)
  1. LEMBOREXANT [Suspect]
     Active Substance: LEMBOREXANT
     Indication: Insomnia
     Route: 048
  2. LEMBOREXANT [Suspect]
     Active Substance: LEMBOREXANT
     Route: 048
  3. LEMBOREXANT [Suspect]
     Active Substance: LEMBOREXANT
     Route: 048
  4. RAMELTEON [Concomitant]
     Active Substance: RAMELTEON
     Indication: Insomnia
     Route: 065
  5. QUETIAPINE [Concomitant]
     Active Substance: QUETIAPINE
     Indication: Delirium
     Dosage: BEFORE BEDTIME.
     Route: 065
  6. QUETIAPINE [Concomitant]
     Active Substance: QUETIAPINE
     Indication: Sleep disorder
     Dosage: BEFORE BEDTIME.
     Route: 065

REACTIONS (1)
  - Parasomnia [Recovered/Resolved]
